FAERS Safety Report 18097763 (Version 2)
Quarter: 2020Q3

REPORT INFORMATION
  Report Type: Report from Study
  Country: GT (occurrence: GT)
  Receive Date: 20200731
  Receipt Date: 20200809
  Transmission Date: 20201103
  Serious: Yes (Death, Other)
  Sender: FDA-Public Use
  Company Number: NVSC2020GT214404

PATIENT
  Age: 68 Year
  Sex: Female

DRUGS (5)
  1. VYMADA [Suspect]
     Active Substance: SACUBITRIL\VALSARTAN
     Indication: CARDIAC FAILURE
     Dosage: 50 MG, BEGINNING OF MAR 2020/SINCE 4 MONTHS AGO APPROXIMATELY
     Route: 065
     Dates: start: 202003
  2. FUROSEMIDE. [Concomitant]
     Active Substance: FUROSEMIDE
     Dosage: 1 DF, BID (MORNING AND NIGHT)
     Route: 065
     Dates: start: 202003
  3. FUROSEMIDE. [Concomitant]
     Active Substance: FUROSEMIDE
     Indication: PRODUCT USED FOR UNKNOWN INDICATION
     Dosage: 1 DF, BID (MORNING AND NIGHT)
     Route: 065
  4. BRITOMAR [Concomitant]
     Active Substance: TORSEMIDE
     Indication: PRODUCT USED FOR UNKNOWN INDICATION
     Dosage: 10 MG (MID?DAY)
     Route: 065
     Dates: start: 202003
  5. INSULIN [Concomitant]
     Active Substance: INSULIN NOS
     Indication: PRODUCT USED FOR UNKNOWN INDICATION
     Dosage: UNK
     Route: 065

REACTIONS (8)
  - Aphasia [Unknown]
  - Renal failure [Fatal]
  - Condition aggravated [Fatal]
  - Eating disorder [Unknown]
  - Cardiac failure [Fatal]
  - Pleural effusion [Unknown]
  - Respiratory failure [Fatal]
  - Pneumothorax [Unknown]

NARRATIVE: CASE EVENT DATE: 20200623
